FAERS Safety Report 8494005 (Version 2)
Quarter: 2013Q2

REPORT INFORMATION
  Report Type: Spontaneous
  Country: US (occurrence: None)
  Receive Date: 20120326
  Receipt Date: 20120621
  Transmission Date: 20140414
  Serious: Yes (Death, Hospitalization)
  Sender: FDA-Public Use
  Company Number: UTC-015579

PATIENT
  Age: 45 Year
  Sex: Female
  Weight: 74.1 kg

DRUGS (3)
  1. TYVASO [Suspect]
     Indication: COR PULMONALE CHRONIC
     Dosage: 18-72 MICROGRAMS (4 IN 1 D), INHALATION
     Route: 055
     Dates: start: 20110830
  2. ADCIRCA [Concomitant]
  3. DIURETICS [Concomitant]

REACTIONS (1)
  - PROCEDURAL COMPLICATION [None]
